FAERS Safety Report 8363290-9 (Version None)
Quarter: 2012Q2

REPORT INFORMATION
  Report Type: 
  Country: None (occurrence: None)
  Receive Date: 20120516
  Receipt Date: 20120508
  Transmission Date: 20120825
  Serious: Yes (Hospitalization)
  Sender: FDA-Public Use
  Company Number: JP-VERTEX PHARMACEUTICALS INC.-AE-2012-004058

PATIENT
  Age: 57 Year
  Sex: Female

DRUGS (12)
  1. GASMOTIN [Concomitant]
     Route: 048
     Dates: start: 20120220
  2. PEG-INTRON [Concomitant]
     Indication: HEPATITIS C
     Route: 051
     Dates: start: 20120123, end: 20120316
  3. NABOAL [Concomitant]
     Route: 048
     Dates: start: 20120123, end: 20120229
  4. REBETOL [Concomitant]
     Indication: HEPATITIS C
     Route: 048
     Dates: start: 20120123, end: 20120215
  5. URSO 250 [Concomitant]
     Route: 048
  6. TELAVIC (TELAPREVIR) [Suspect]
     Indication: HEPATITIS C
     Route: 048
     Dates: start: 20120123, end: 20120125
  7. TELAVIC (TELAPREVIR) [Suspect]
     Route: 048
     Dates: start: 20120201, end: 20120323
  8. FAMOTIDINE [Concomitant]
     Route: 048
     Dates: end: 20120126
  9. LANSOPRAZOLE [Concomitant]
     Route: 048
     Dates: start: 20120126
  10. VOLTAREN-XR [Concomitant]
     Route: 048
     Dates: start: 20120302, end: 20120308
  11. REBETOL [Concomitant]
     Route: 048
     Dates: start: 20120216, end: 20120330
  12. EPINASTINE HYDROCHLORIDE [Concomitant]
     Route: 048
     Dates: start: 20120130

REACTIONS (3)
  - BLOOD URIC ACID INCREASED [None]
  - DEPRESSIVE SYMPTOM [None]
  - BLOOD CREATININE INCREASED [None]
